FAERS Safety Report 21310200 (Version 5)
Quarter: 2024Q1

REPORT INFORMATION
  Report Type: Report from Study
  Country: CA (occurrence: CA)
  Receive Date: 20220909
  Receipt Date: 20240320
  Transmission Date: 20240410
  Serious: Yes (Other)
  Sender: FDA-Public Use
  Company Number: CA-CELLTRION INC.-2022CA014407

PATIENT

DRUGS (21)
  1. TRUXIMA [Suspect]
     Active Substance: RITUXIMAB-ABBS
     Indication: Rheumatoid arthritis
     Dosage: 1000 MILLIGRAM, 12.5 ML/HR (INFUSION #1)
     Route: 042
     Dates: start: 20220825
  2. TRUXIMA [Suspect]
     Active Substance: RITUXIMAB-ABBS
     Dosage: 1000 MILLIGRAM, (INFUSION #2)
     Route: 042
     Dates: start: 20220825
  3. TRUXIMA [Suspect]
     Active Substance: RITUXIMAB-ABBS
     Dosage: 1000 MG (INFUSION #3, TRUXIMA INFUSION STARTED AT 25 ML/HR))
     Route: 042
     Dates: start: 20220825
  4. TRUXIMA [Suspect]
     Active Substance: RITUXIMAB-ABBS
     Dosage: 1000 MG INFUSION #7
     Route: 042
     Dates: start: 20220825
  5. VALTREX [Concomitant]
     Active Substance: VALACYCLOVIR HYDROCHLORIDE
  6. PREDNISONE [Concomitant]
     Active Substance: PREDNISONE
     Dosage: UNK
  7. PREDNISONE [Concomitant]
     Active Substance: PREDNISONE
     Dosage: 30 MG, PO OD
     Route: 048
  8. SPIRONOLACTONE [Concomitant]
     Active Substance: SPIRONOLACTONE
  9. BISOPROLOL [Concomitant]
     Active Substance: BISOPROLOL\BISOPROLOL FUMARATE
  10. TELMISARTAN [Concomitant]
     Active Substance: TELMISARTAN
  11. FUROSEMIDE [Concomitant]
     Active Substance: FUROSEMIDE
  12. PREGABALIN [Concomitant]
     Active Substance: PREGABALIN
  13. VITAMIN D NOS [Concomitant]
     Active Substance: VITAMIN D NOS
  14. VITAMIN C [Concomitant]
     Active Substance: ASCORBIC ACID
  15. DIETARY SUPPLEMENT\HERBALS\MILK THISTLE [Concomitant]
     Active Substance: MILK THISTLE
     Dosage: UNK
  16. SOLU-MEDROL [Concomitant]
     Active Substance: METHYLPREDNISOLONE SODIUM SUCCINATE
     Indication: Premedication
     Dosage: 100 MG IV
     Route: 042
  17. TYLENOL [Concomitant]
     Active Substance: ACETAMINOPHEN
     Dosage: 1000 MILLIGRAM
  18. DIPHENHYDRAMINE HYDROCHLORIDE [Concomitant]
     Active Substance: DIPHENHYDRAMINE HYDROCHLORIDE
     Indication: Premedication
     Dosage: UNK
     Route: 048
  19. ACETAMINOPHEN [Concomitant]
     Active Substance: ACETAMINOPHEN
     Indication: Premedication
     Dosage: 650 MG PO
     Route: 048
  20. PROPIVERINE [Concomitant]
     Active Substance: PROPIVERINE
     Dosage: UNK
  21. BENADRYL [Concomitant]
     Active Substance: DIPHENHYDRAMINE HYDROCHLORIDE
     Indication: Premedication
     Dosage: 50 MG PO
     Route: 048

REACTIONS (13)
  - Blood pressure systolic increased [Unknown]
  - Blood pressure systolic increased [Recovered/Resolved]
  - Blood pressure increased [Unknown]
  - Headache [Unknown]
  - Electrocardiogram ambulatory [Unknown]
  - Dizziness [Recovered/Resolved]
  - Rash [Recovered/Resolved]
  - Fatigue [Unknown]
  - Vomiting [Recovered/Resolved]
  - Headache [Recovered/Resolved]
  - Headache [Unknown]
  - Blood pressure increased [Recovering/Resolving]
  - Infusion related reaction [Unknown]

NARRATIVE: CASE EVENT DATE: 20220825
